FAERS Safety Report 6960744-4 (Version None)
Quarter: 2010Q3

REPORT INFORMATION
  Report Type: 
  Country: None (occurrence: None)
  Receive Date: 20100901
  Receipt Date: 20100822
  Transmission Date: 20110219
  Serious: Yes (Hospitalization, Other)
  Sender: FDA-Public Use
  Company Number: US-PFIZER INC-2010106149

PATIENT
  Sex: Female
  Weight: 53 kg

DRUGS (3)
  1. CHANTIX [Suspect]
     Indication: SMOKING CESSATION THERAPY
     Dosage: 0.5 MG, 1X/DAY
     Route: 048
  2. CHANTIX [Suspect]
     Dosage: 1 MG, 2X/DAY
     Route: 048
     Dates: end: 20091201
  3. PREMARIN [Concomitant]
     Dosage: UNK

REACTIONS (17)
  - ANXIETY [None]
  - BALANCE DISORDER [None]
  - BLINDNESS [None]
  - CHEST PAIN [None]
  - CONTUSION [None]
  - DYSGRAPHIA [None]
  - FALL [None]
  - FIBROMYALGIA [None]
  - MYOCARDIAL INFARCTION [None]
  - OEDEMA MOUTH [None]
  - OEDEMA PERIPHERAL [None]
  - PALPITATIONS [None]
  - PRURITUS [None]
  - SWELLING FACE [None]
  - SWOLLEN TONGUE [None]
  - TOOTH LOSS [None]
  - WEIGHT DECREASED [None]
